FAERS Safety Report 10294903 (Version 1)
Quarter: 2014Q3

REPORT INFORMATION
  Report Type: Spontaneous
  Country: AU (occurrence: AU)
  Receive Date: 20140710
  Receipt Date: 20140710
  Transmission Date: 20150326
  Serious: Yes (Other)
  Sender: FDA-Public Use
  Company Number: AU-009507513-1407AUS003750

PATIENT
  Sex: Female

DRUGS (6)
  1. COVERSYL (PERINDOPRIL ARGININE) [Concomitant]
     Active Substance: PERINDOPRIL
  2. AMLODIPINE [Concomitant]
     Active Substance: AMLODIPINE BESYLATE
  3. TELAPREVIR [Interacting]
     Active Substance: TELAPREVIR
     Dosage: INCIVO, DOSE UNSPECIFIED
     Route: 048
  4. RIBAVIRIN. [Suspect]
     Active Substance: RIBAVIRIN
     Dosage: ORAL
     Route: 048
  5. PEGINTERFERON ALFA-2B [Interacting]
     Active Substance: PEGINTERFERON ALFA-2B
  6. COVERAM [Concomitant]
     Active Substance: AMLODIPINE\PERINDOPRIL

REACTIONS (2)
  - Hypertension [Recovering/Resolving]
  - Rash [Recovering/Resolving]

NARRATIVE: CASE EVENT DATE: 2014
